FAERS Safety Report 8462767-5 (Version None)
Quarter: 2012Q2

REPORT INFORMATION
  Report Type: 
  Country: None (occurrence: None)
  Receive Date: 20120619
  Receipt Date: 20120619
  Transmission Date: 20120825
  Serious: No
  Sender: FDA-Public Use
  Company Number: None

PATIENT
  Age: 81 Year
  Sex: Female

DRUGS (8)
  1. LASIX [Concomitant]
  2. WARFARIN SODIUM [Suspect]
     Indication: ATRIAL FIBRILLATION
     Dosage: 4 MG QHS OTHER
     Route: 050
     Dates: start: 20120124, end: 20120129
  3. VASOTEC [Concomitant]
  4. NEXIUM [Concomitant]
  5. VANCOMYCIN [Concomitant]
  6. LOPRESSOR [Concomitant]
  7. ENOXAPARIN [Suspect]
     Indication: ATRIAL FIBRILLATION
     Dosage: 40 MG Q12H SQ
     Route: 058
     Dates: start: 20120125, end: 20120129
  8. CARDIZEM [Concomitant]

REACTIONS (1)
  - HAEMORRHAGE INTRACRANIAL [None]
